APPROVED DRUG PRODUCT: ADDERALL 30
Active Ingredient: AMPHETAMINE ASPARTATE; AMPHETAMINE SULFATE; DEXTROAMPHETAMINE SACCHARATE; DEXTROAMPHETAMINE SULFATE
Strength: 7.5MG;7.5MG;7.5MG;7.5MG **Federal Register determination that product was not discontinued or withdrawn for safety or effectiveness reasons**
Dosage Form/Route: TABLET;ORAL
Application: N011522 | Product #010
Applicant: TEVA WOMENS HEALTH INC
Approved: May 12, 1997 | RLD: Yes | RS: No | Type: DISCN